FAERS Safety Report 7328847-2 (Version None)
Quarter: 2011Q1

REPORT INFORMATION
  Report Type: 
  Country: None (occurrence: None)
  Receive Date: 20110303
  Receipt Date: 20110221
  Transmission Date: 20110831
  Serious: Yes (Other)
  Sender: FDA-Public Use
  Company Number: US-ROCHE-761230

PATIENT
  Age: 64 Year
  Sex: Female

DRUGS (2)
  1. AVASTIN [Suspect]
     Route: 065
     Dates: start: 20100601
  2. ABRAXANE [Suspect]
     Route: 065
     Dates: start: 20100601

REACTIONS (2)
  - SUBCUTANEOUS NODULE [None]
  - LYMPHATIC SYSTEM NEOPLASM [None]
